FAERS Safety Report 4700879-X (Version None)
Quarter: 2005Q2

REPORT INFORMATION
  Report Type: 
  Country: None (occurrence: None)
  Receive Date: 20050628
  Receipt Date: 20050524
  Transmission Date: 20051028
  Serious: Yes (Hospitalization)
  Sender: FDA-Public Use
  Company Number: AU-BOEHRINGER INGELHEIM PHARMACEUTICALS, INC.-2005-BP-09443AU

PATIENT
  Sex: Male

DRUGS (7)
  1. MOBIC [Suspect]
     Indication: PAIN
     Route: 048
     Dates: start: 20041110, end: 20050223
  2. ATACAND [Concomitant]
     Route: 048
     Dates: start: 20050414
  3. LIPEX [Concomitant]
     Route: 048
     Dates: start: 20050414
  4. PARADEX [Concomitant]
     Route: 048
     Dates: start: 20050414
  5. LOSEC [Concomitant]
     Route: 048
     Dates: start: 20050414
  6. CARTIA XT [Concomitant]
     Route: 048
     Dates: start: 20050414
  7. METOPROLOL SUCCINATE [Concomitant]
     Route: 048
     Dates: start: 20050301

REACTIONS (4)
  - INCORRECT DOSE ADMINISTERED [None]
  - LETHARGY [None]
  - MALAISE [None]
  - NON-CARDIAC CHEST PAIN [None]
